FAERS Safety Report 8837370 (Version 2)
Quarter: 2012Q4

REPORT INFORMATION
  Report Type: 
  Country: ZA (occurrence: ZA)
  Receive Date: 20121012
  Receipt Date: 20121227
  Transmission Date: 20130627
  Serious: Yes (Hospitalization, Other)
  Sender: FDA-Public Use
  Company Number: ZA-ELI_LILLY_AND_COMPANY-ZA201210000714

PATIENT
  Sex: Female

DRUGS (9)
  1. HUMALOG 25% LISPRO, 75% NPL [Suspect]
     Indication: TYPE 2 DIABETES MELLITUS
     Dosage: 30 u, each morning
     Route: 058
     Dates: start: 20120813
  2. HUMALOG 25% LISPRO, 75% NPL [Suspect]
     Dosage: 15 u, each evening
     Route: 058
     Dates: start: 20120813
  3. METFORMIN [Concomitant]
     Indication: DIABETES MELLITUS
     Dosage: 1000 mg, bid
     Route: 048
  4. VERAHEXAL [Concomitant]
     Indication: BLOOD CALCIUM
     Dosage: 120 mg, qd
     Route: 048
  5. WARFARIN [Concomitant]
     Indication: ANTICOAGULANT THERAPY
     Dosage: 1 DF, qd
     Route: 048
  6. ECOTRIN [Concomitant]
     Indication: PLATELET AGGREGATION INHIBITION
     Dosage: 1 DF, qd
     Route: 048
  7. VALSARTAN [Concomitant]
     Indication: BLOOD PRESSURE
     Dosage: 1 DF, qd
     Route: 048
  8. MICHOL [Concomitant]
     Indication: BLOOD CHOLESTEROL
     Dosage: 1 DF, qd
     Route: 048
  9. LANOXIN [Concomitant]
     Indication: ARRHYTHMIA
     Dosage: 1 DF, qd
     Route: 048

REACTIONS (2)
  - Intracardiac thrombus [Recovering/Resolving]
  - Atrial fibrillation [Unknown]
